FAERS Safety Report 17950710 (Version 1)
Quarter: 2020Q2

REPORT INFORMATION
  Report Type: Report from Study
  Country: CO (occurrence: CO)
  Receive Date: 20200626
  Receipt Date: 20200626
  Transmission Date: 20200714
  Serious: Yes (Hospitalization)
  Sender: FDA-Public Use
  Company Number: NVSC2020CO178737

PATIENT
  Sex: Female

DRUGS (1)
  1. VOTRIENT [Suspect]
     Active Substance: PAZOPANIB HYDROCHLORIDE
     Indication: SOFT TISSUE SARCOMA
     Dosage: UNK
     Route: 048

REACTIONS (9)
  - General physical health deterioration [Unknown]
  - Metastases to central nervous system [Unknown]
  - Brain oedema [Unknown]
  - Asthenia [Unknown]
  - Gastritis [Unknown]
  - Haemorrhage [Unknown]
  - Head discomfort [Unknown]
  - Gastric ulcer [Unknown]
  - Anaemia [Unknown]
